FAERS Safety Report 8535086-6 (Version None)
Quarter: 2012Q3

REPORT INFORMATION
  Report Type: 
  Country: None (occurrence: None)
  Receive Date: 20120724
  Receipt Date: 20120718
  Transmission Date: 20120928
  Serious: No
  Sender: FDA-Public Use
  Company Number: US-PFIZER INC-2012174303

PATIENT
  Sex: Female
  Weight: 77.098 kg

DRUGS (4)
  1. BUPROPION [Concomitant]
     Dosage: UNK
  2. PRISTIQ [Suspect]
     Indication: ANXIETY
     Dosage: UNK
     Route: 048
  3. PRISTIQ [Suspect]
     Indication: DEPRESSION
  4. SPIRONOLACTONE [Concomitant]
     Indication: HYPERTENSION
     Dosage: UNK

REACTIONS (6)
  - AGGRESSION [None]
  - ANGER [None]
  - IRRITABILITY [None]
  - SEDATION [None]
  - BLOOD ALDOSTERONE INCREASED [None]
  - FEELING ABNORMAL [None]
